FAERS Safety Report 9525700 (Version 2)
Quarter: 2013Q4

REPORT INFORMATION
  Report Type: Spontaneous
  Country: US (occurrence: US)
  Receive Date: 20130916
  Receipt Date: 20131007
  Transmission Date: 20140711
  Serious: No
  Sender: FDA-Public Use
  Company Number: US-BAYER-2013-106884

PATIENT
  Sex: Male

DRUGS (1)
  1. LEVITRA [Suspect]
     Dosage: UNK

REACTIONS (3)
  - Wrong technique in drug usage process [None]
  - Wrong technique in drug usage process [None]
  - Drug ineffective [None]
